FAERS Safety Report 8433755 (Version 5)
Quarter: 2012Q4

REPORT INFORMATION
  Report Type: Report from Study
  Country: JP (occurrence: JP)
  Receive Date: 20120229
  Receipt Date: 20121105
  Transmission Date: 20130627
  Serious: Yes (Hospitalization)
  Sender: FDA-Public Use
  Company Number: PHHO2012JP003248

PATIENT
  Age: 17 Year
  Sex: Male

DRUGS (11)
  1. ACZ885 [Suspect]
     Indication: CRYOPYRIN ASSOCIATED PERIODIC SYNDROME
     Dosage: 150 mg, UNK
     Route: 058
     Dates: start: 20100107, end: 20120126
  2. LOXONIN [Concomitant]
     Indication: CRYOPYRIN ASSOCIATED PERIODIC SYNDROME
     Dosage: UNK
     Route: 048
     Dates: start: 20100109
  3. HIRUDOID [Concomitant]
     Indication: ECZEMA
     Dosage: UNK
     Dates: start: 20100109
  4. RINDERON-VG [Concomitant]
     Indication: ECZEMA
     Dosage: UNK
     Dates: start: 200906
  5. ACUATIM [Concomitant]
     Indication: ECZEMA
     Dosage: UNK
     Dates: start: 20100623
  6. AZUNOL [Concomitant]
     Indication: STOMATITIS
     Dosage: UNK
     Route: 048
     Dates: start: 20101201
  7. NAIXAN [Concomitant]
     Indication: POLYARTHRITIS
     Dosage: UNK
     Route: 048
     Dates: start: 20110310
  8. GASTER [Concomitant]
     Indication: PROPHYLAXIS AGAINST GASTROINTESTINAL ULCER
     Dosage: 20 mg, UNK
     Route: 048
     Dates: start: 20110310
  9. PREDONINE [Concomitant]
     Indication: CRYOPYRIN ASSOCIATED PERIODIC SYNDROME
     Dosage: 5 mg, UNK
     Route: 048
     Dates: start: 200906, end: 20100929
  10. ALEGYSAL [Concomitant]
     Indication: CONJUNCTIVITIS ALLERGIC
     Dosage: UNK
     Dates: start: 20110811
  11. ANAKINRA [Concomitant]

REACTIONS (7)
  - Appendicitis [Recovered/Resolved]
  - Bronchitis [Recovered/Resolved]
  - Oropharyngeal pain [Recovered/Resolved]
  - Diarrhoea [Recovered/Resolved]
  - Tooth injury [Recovered/Resolved]
  - Nasopharyngitis [Recovered/Resolved]
  - Otitis externa [Recovered/Resolved]
